FAERS Safety Report 12269447 (Version 3)
Quarter: 2016Q2

REPORT INFORMATION
  Report Type: Spontaneous
  Country: VE (occurrence: VE)
  Receive Date: 20160414
  Receipt Date: 20160511
  Transmission Date: 20160815
  Serious: Yes (Hospitalization, Other)
  Sender: FDA-Public Use
  Company Number: PHHY2016VE050033

PATIENT
  Sex: Female

DRUGS (2)
  1. STALEVO [Suspect]
     Active Substance: CARBIDOPA\ENTACAPONE\LEVODOPA
     Indication: PARKINSON^S DISEASE
     Dosage: 50 MG, UNK
     Route: 048
  2. COVENTROL [Concomitant]
     Indication: PERICARDIAL EFFUSION
     Dosage: 12.5 MG, UNK
     Route: 065

REACTIONS (10)
  - Loss of consciousness [Unknown]
  - Parkinsonian crisis [Unknown]
  - Cardiac disorder [Not Recovered/Not Resolved]
  - Gait disturbance [Not Recovered/Not Resolved]
  - Fall [Not Recovered/Not Resolved]
  - Memory impairment [Unknown]
  - Head discomfort [Not Recovered/Not Resolved]
  - Fracture [Not Recovered/Not Resolved]
  - Injury [Unknown]
  - General physical health deterioration [Unknown]
